FAERS Safety Report 8992650 (Version 2)
Quarter: 2013Q1

REPORT INFORMATION
  Report Type: Spontaneous
  Country: CA (occurrence: CA)
  Receive Date: 20130101
  Receipt Date: 20130212
  Transmission Date: 20140127
  Serious: Yes (Other)
  Sender: FDA-Public Use
  Company Number: PHHY2012CA120508

PATIENT
  Sex: Female

DRUGS (3)
  1. ACLASTA [Suspect]
     Indication: OSTEOPOROSIS
     Dosage: UNK
     Route: 042
     Dates: start: 20100318
  2. ACLASTA [Suspect]
     Dosage: UNK
     Route: 042
     Dates: start: 20110323
  3. ACLASTA [Suspect]
     Dosage: UNK
     Route: 042
     Dates: start: 20120319

REACTIONS (2)
  - Adverse drug reaction [Unknown]
  - Renal failure chronic [Unknown]
